FAERS Safety Report 10079646 (Version 1)
Quarter: 2014Q2

REPORT INFORMATION
  Report Type: Spontaneous
  Country: KR (occurrence: KR)
  Receive Date: 20140415
  Receipt Date: 20140415
  Transmission Date: 20141212
  Serious: Yes (Death, Other)
  Sender: FDA-Public Use
  Company Number: KR-BAXTER-2014BAX017969

PATIENT
  Age: 61 Year
  Sex: Male

DRUGS (3)
  1. HOLOXAN INJ 1000MG [Suspect]
     Indication: FIBROUS HISTIOCYTOMA
     Dosage: 2.5 G/M2 ON DAYS 1-3
     Route: 065
  2. UROMITEXAN INJ. 200MG [Suspect]
     Indication: PROPHYLAXIS
     Route: 065
  3. ADRIAMYCIN [Suspect]
     Indication: FIBROUS HISTIOCYTOMA
     Dosage: DAYS 1-3
     Route: 065

REACTIONS (3)
  - Fanconi syndrome acquired [Unknown]
  - Diabetes insipidus [Unknown]
  - Metabolic acidosis [Fatal]
